FAERS Safety Report 10874493 (Version 1)
Quarter: 2015Q1

REPORT INFORMATION
  Report Type: Spontaneous
  Country: US (occurrence: US)
  Receive Date: 20150227
  Receipt Date: 20150227
  Transmission Date: 20150721
  Serious: Yes (Hospitalization, Congenital Anomaly, Other)
  Sender: FDA-Public Use
  Company Number: US-APOTEX-2015AP007055

PATIENT
  Age: 0 Year
  Sex: Male

DRUGS (6)
  1. HYDROCODONE [Concomitant]
     Active Substance: HYDROCODONE
     Indication: PRODUCT USED FOR UNKNOWN INDICATION
     Dosage: UNK UNK, SINGLE
     Route: 064
  2. PAXIL [Suspect]
     Active Substance: PAROXETINE HYDROCHLORIDE
     Indication: ANXIETY
  3. DARVOCET [Concomitant]
     Active Substance: ACETAMINOPHEN\PROPOXYPHENE HYDROCHLORIDE
     Indication: PRODUCT USED FOR UNKNOWN INDICATION
     Route: 064
  4. PRENATAL VITAMINS                  /07426201/ [Concomitant]
     Active Substance: ASCORBIC ACID\BIOTIN\MINERALS\NIACIN\RETINOL\TOCOPHEROL\VITAMIN B\VITAMIN D
     Indication: PRODUCT USED FOR UNKNOWN INDICATION
     Route: 064
  5. PAXIL [Suspect]
     Active Substance: PAROXETINE HYDROCHLORIDE
     Indication: DEPRESSION
     Dosage: UNK
     Route: 064
     Dates: start: 200404, end: 20040829
  6. ANTIBIOTIC                         /00011701/ [Concomitant]
     Active Substance: UNSPECIFIED INGREDIENT
     Indication: PRODUCT USED FOR UNKNOWN INDICATION
     Route: 063

REACTIONS (8)
  - Visual acuity reduced [Unknown]
  - Otitis media [Unknown]
  - Attention deficit/hyperactivity disorder [Unknown]
  - Karyotype analysis abnormal [Unknown]
  - Foetal exposure during pregnancy [Unknown]
  - Cleft lip and palate [Unknown]
  - Speech disorder [Unknown]
  - Asthma [Unknown]

NARRATIVE: CASE EVENT DATE: 20040430
